FAERS Safety Report 4359454-1 (Version None)
Quarter: 2004Q2

REPORT INFORMATION
  Report Type: 
  Country: None (occurrence: None)
  Receive Date: 20040512
  Receipt Date: 20040512
  Transmission Date: 20050107
  Serious: Yes (Other)
  Sender: FDA-Public Use
  Company Number: USA040466196

PATIENT
  Age: 60 Year
  Sex: Female

DRUGS (8)
  1. FORTEO [Suspect]
     Indication: BACK INJURY
     Dates: start: 20030601, end: 20040101
  2. FORTEO [Suspect]
     Indication: OSTEOPOROSIS
     Dates: start: 20030601, end: 20040101
  3. CALCIUM [Concomitant]
  4. PREDNISONE [Concomitant]
  5. ACETYLSALICYLIC ACID SRT [Concomitant]
  6. MICARDIS [Concomitant]
  7. DOXEPIN HCL [Concomitant]
  8. SOMA [Concomitant]

REACTIONS (11)
  - ARTHRITIS [None]
  - BACK PAIN [None]
  - BLOOD PRESSURE FLUCTUATION [None]
  - CONDITION AGGRAVATED [None]
  - DRY SKIN [None]
  - EXOSTOSIS [None]
  - HAIR TEXTURE ABNORMAL [None]
  - HYPOTHYROIDISM [None]
  - MUSCLE SPASMS [None]
  - NECK PAIN [None]
  - PHARMACEUTICAL PRODUCT COMPLAINT [None]
